FAERS Safety Report 10658207 (Version 1)
Quarter: 2014Q4

REPORT INFORMATION
  Report Type: Spontaneous
  Country: US (occurrence: None)
  Receive Date: 20141216
  Receipt Date: 20141216
  Transmission Date: 20150529
  Serious: No
  Sender: FDA-Public Use
  Company Number: None

PATIENT
  Age: 64 Year
  Sex: Female
  Weight: 86 kg

DRUGS (6)
  1. LISINOPRIL. [Concomitant]
     Active Substance: LISINOPRIL
  2. CLONAZEPAM. [Concomitant]
     Active Substance: CLONAZEPAM
  3. LITHIUM [Suspect]
     Active Substance: LITHIUM CARBONATE
     Indication: DEPRESSION
     Route: 048
  4. QUETIAPINE [Concomitant]
     Active Substance: QUETIAPINE
  5. LITHIUM [Suspect]
     Active Substance: LITHIUM CARBONATE
     Indication: SCHIZOAFFECTIVE DISORDER
     Route: 048
  6. ROSUVASTATIN [Concomitant]
     Active Substance: ROSUVASTATIN

REACTIONS (9)
  - Ataxia [None]
  - Vomiting [None]
  - Toxicity to various agents [None]
  - Mental status changes [None]
  - Dysarthria [None]
  - Tremor [None]
  - Drug interaction [None]
  - VIIth nerve paralysis [None]
  - Cerebral infarction [None]

NARRATIVE: CASE EVENT DATE: 20141206
